FAERS Safety Report 6111123-3 (Version None)
Quarter: 2009Q1

REPORT INFORMATION
  Report Type: 
  Country: None (occurrence: None)
  Receive Date: 20090311
  Receipt Date: 20090224
  Transmission Date: 20090719
  Serious: Yes (Hospitalization)
  Sender: FDA-Public Use
  Company Number: JP-TEVA-187352ISR

PATIENT
  Sex: Male
  Weight: 52 kg

DRUGS (4)
  1. CISPLATIN [Suspect]
     Indication: PLEURAL MESOTHELIOMA MALIGNANT
     Dates: start: 20080115
  2. PEMETREXED [Suspect]
     Indication: PLEURAL MESOTHELIOMA MALIGNANT
     Dates: start: 20080115
  3. HYDROXOCOBALAMIN ACETATE [Concomitant]
     Dates: start: 20080108, end: 20080710
  4. PANVITAN [Concomitant]
     Dates: start: 20080108, end: 20080918

REACTIONS (1)
  - BLOOD PRESSURE DECREASED [None]
